FAERS Safety Report 19281597 (Version 2)
Quarter: 2021Q2

REPORT INFORMATION
  Report Type: Spontaneous
  Country: CA (occurrence: CA)
  Receive Date: 20210520
  Receipt Date: 20210528
  Transmission Date: 20210717
  Serious: Yes (Other)
  Sender: FDA-Public Use
  Company Number: CA-PFIZER INC-2021529078

PATIENT
  Age: 8 Month
  Sex: Male

DRUGS (2)
  1. CRIZOTINIB [Suspect]
     Active Substance: CRIZOTINIB
     Indication: NEUROBLASTOMA
     Dosage: 280 MG/M2, 2X/DAY
  2. CRIZOTINIB [Suspect]
     Active Substance: CRIZOTINIB
     Dosage: UNK (~120?140 MG/M2/DOSE)

REACTIONS (5)
  - Infantile vomiting [Unknown]
  - Diarrhoea [Unknown]
  - Transaminases increased [Unknown]
  - Neutropenia [Unknown]
  - Blood creatinine increased [Unknown]
